FAERS Safety Report 18751316 (Version 1)
Quarter: 2021Q1

REPORT INFORMATION
  Report Type: Spontaneous
  Country: US (occurrence: US)
  Receive Date: 20210118
  Receipt Date: 20210118
  Transmission Date: 20210419
  Serious: No
  Sender: FDA-Public Use
  Company Number: US-HORIZON-2021HZN00315

PATIENT
  Age: 62 Year
  Sex: Male

DRUGS (5)
  1. NALTREXONENALTREXONE [Concomitant]
  2. TORASEMIDETORASEMIDE [Concomitant]
  3. BUPROPIONBUPROPION [Concomitant]
  4. SPIRIVATIOTROPIUMBROMID [Concomitant]
  5. TEPEZZA [Suspect]
     Active Substance: TEPROTUMUMAB-TRBW
     Indication: BASEDOW^S DISEASE
     Dates: start: 20200904, end: 20201218

REACTIONS (4)
  - Back disorder [Not Recovered/Not Resolved]
  - Muscle spasms [Not Recovered/Not Resolved]
  - Alopecia [Not Recovered/Not Resolved]
  - Nausea [Not Recovered/Not Resolved]

NARRATIVE: CASE EVENT DATE: 20200925
